FAERS Safety Report 8720838 (Version 3)
Quarter: 2013Q3

REPORT INFORMATION
  Report Type: Report from Study
  Country: US (occurrence: US)
  Receive Date: 20120813
  Receipt Date: 20130902
  Transmission Date: 20140515
  Serious: Yes (Other)
  Sender: FDA-Public Use
  Company Number: US-ROCHE-769761

PATIENT
  Age: 66 Year
  Sex: Female
  Weight: 65.3 kg

DRUGS (6)
  1. VISMODEGIB [Suspect]
     Indication: SMALL CELL LUNG CANCER
     Dosage: LAST DOSE ADMINISTERED ON 03/01/2011
     Route: 048
  2. VISMODEGIB [Suspect]
     Dosage: LAST DOSE ADMINISTERED ON 01/APR/2011?TOTAL DOSE ON FOURTH COURSE: 4650 MG
     Route: 048
  3. ETOPOSIDE [Suspect]
     Indication: SMALL CELL LUNG CANCER
     Dosage: 100 MG/M2, QDX3D/21DC?TOTAL DOSE ON FOURTH COURSE: 525 MG
     Route: 042
     Dates: start: 20101210, end: 20101231
  4. ETOPOSIDE [Suspect]
     Dosage: 100 MG/M2, QDX3D/21DC?LAST ADMINISTERED DATE: 04/MAR/2011
     Route: 042
     Dates: end: 20110407
  5. CISPLATIN [Suspect]
     Indication: SMALL CELL LUNG CANCER
     Dosage: 75 MG/M2, Q21D?TOTAL DOSE IN FOURTH COURSE: 130 MG
     Route: 042
     Dates: start: 20101210, end: 20101229
  6. CISPLATIN [Suspect]
     Dosage: 75 MG/M2, Q21D?LAST ADMINISTERED DATE: 02/MAR/2011
     Route: 042
     Dates: end: 20110407

REACTIONS (2)
  - Anaemia [Recovering/Resolving]
  - Weight decreased [Not Recovered/Not Resolved]
